FAERS Safety Report 22207748 (Version 3)
Quarter: 2023Q2

REPORT INFORMATION
  Report Type: Spontaneous
  Country: US (occurrence: None)
  Receive Date: 20230413
  Receipt Date: 20230511
  Transmission Date: 20230722
  Serious: Yes (Hospitalization, Other)
  Sender: FDA-Public Use
  Company Number: US-Hikma Pharmaceuticals USA Inc.-US-H14001-23-01137

PATIENT
  Sex: Female

DRUGS (1)
  1. PREDNISONE [Suspect]
     Active Substance: PREDNISONE
     Indication: Systemic lupus erythematosus
     Dosage: UNKNOWN
     Route: 065

REACTIONS (31)
  - Peripheral swelling [Unknown]
  - Pain in extremity [Unknown]
  - Stress [Unknown]
  - Scar [Unknown]
  - Weight increased [Unknown]
  - Memory impairment [Unknown]
  - Systemic lupus erythematosus [Unknown]
  - Fatigue [Unknown]
  - Butterfly rash [Recovered/Resolved]
  - Finger deformity [Unknown]
  - Extremity contracture [Unknown]
  - Motor dysfunction [Unknown]
  - Dysstasia [Unknown]
  - Arthropathy [Unknown]
  - Arthralgia [Unknown]
  - Thrombosis [Unknown]
  - Bladder disorder [Unknown]
  - Micturition urgency [Unknown]
  - Reduced bladder capacity [Unknown]
  - Myocardial infarction [Unknown]
  - Cardiomyopathy [Unknown]
  - Impaired work ability [Unknown]
  - Lung disorder [Unknown]
  - Alopecia [Unknown]
  - Anxiety [Unknown]
  - Thrombotic stroke [Unknown]
  - Blindness unilateral [Unknown]
  - Headache [Unknown]
  - Brain fog [Unknown]
  - Drug ineffective [Unknown]
  - Off label use [Unknown]
